FAERS Safety Report 7676501-X (Version None)
Quarter: 2011Q3

REPORT INFORMATION
  Report Type: 
  Country: None (occurrence: None)
  Receive Date: 20110811
  Receipt Date: 20110728
  Transmission Date: 20111222
  Serious: Yes (Death)
  Sender: FDA-Public Use
  Company Number: MX-UCBSA-038174

PATIENT
  Sex: Male
  Weight: 11.5 kg

DRUGS (4)
  1. ATEMPERATOR [Concomitant]
     Indication: EPILEPSY
     Route: 048
     Dates: start: 20080101, end: 20110714
  2. KEPPRA [Suspect]
     Indication: EPILEPSY
     Route: 048
     Dates: start: 20100601, end: 20110714
  3. DIAZEPAM [Concomitant]
     Indication: EPILEPSY
     Route: 048
     Dates: start: 20080101, end: 20110714
  4. CLONAZEPAM [Concomitant]
     Indication: EPILEPSY
     Route: 048
     Dates: start: 20080101, end: 20110714

REACTIONS (3)
  - CONVULSION [None]
  - CARDIAC ARREST [None]
  - RESPIRATORY ARREST [None]
